FAERS Safety Report 8707634 (Version 2)
Quarter: 2013Q4

REPORT INFORMATION
  Report Type: Spontaneous
  Country: US (occurrence: US)
  Receive Date: 20120805
  Receipt Date: 20131101
  Transmission Date: 20140711
  Serious: No
  Sender: FDA-Public Use
  Company Number: US-009507513-1207USA011434

PATIENT
  Age: 73 Year
  Sex: Male

DRUGS (4)
  1. VYTORIN [Suspect]
     Route: 048
  2. CRESTOR [Suspect]
     Route: 048
  3. LISINOPRIL [Concomitant]
  4. ATENOLOL [Concomitant]

REACTIONS (3)
  - Adverse event [Unknown]
  - Fatigue [Unknown]
  - Malaise [Unknown]
